FAERS Safety Report 6402977-1 (Version None)
Quarter: 2009Q4

REPORT INFORMATION
  Report Type: 
  Country: None (occurrence: None)
  Receive Date: 20091016
  Receipt Date: 20091006
  Transmission Date: 20100525
  Serious: Yes (Other)
  Sender: FDA-Public Use
  Company Number: BR-JNJFOC-20090905237

PATIENT
  Sex: Female
  Weight: 56 kg

DRUGS (9)
  1. REMICADE [Suspect]
     Indication: DRUG USE FOR UNKNOWN INDICATION
     Route: 042
     Dates: start: 20080101, end: 20080101
  2. ACTEMRA [Suspect]
  3. ACTEMRA [Suspect]
     Indication: DRUG USE FOR UNKNOWN INDICATION
  4. PREDNISONE [Concomitant]
  5. EUTHROID-1 [Concomitant]
  6. CALCIUM [Concomitant]
  7. FOLIC ACID [Concomitant]
  8. METHOTREXATE [Concomitant]
  9. VALERIAN [Concomitant]

REACTIONS (6)
  - HYPOKINESIA [None]
  - INSOMNIA [None]
  - OEDEMA [None]
  - PAIN IN EXTREMITY [None]
  - TUBERCULOSIS [None]
  - WEIGHT INCREASED [None]
